FAERS Safety Report 25705365 (Version 1)
Quarter: 2025Q3

REPORT INFORMATION
  Report Type: Spontaneous
  Country: EU (occurrence: EU)
  Receive Date: 20250820
  Receipt Date: 20250820
  Transmission Date: 20251021
  Serious: Yes (Life-Threatening)
  Sender: AUROBINDO
  Company Number: EU-AEMPS-1741408

PATIENT
  Age: 57 Year
  Sex: Male

DRUGS (1)
  1. NAPROXEN SODIUM [Suspect]
     Active Substance: NAPROXEN SODIUM
     Indication: Pain
     Dosage: 550 MILLIGRAM, ONCE A DAY
     Route: 048
     Dates: start: 20250502

REACTIONS (2)
  - Tongue oedema [Unknown]
  - Erythema [Unknown]

NARRATIVE: CASE EVENT DATE: 20250502
